FAERS Safety Report 4800963-6 (Version None)
Quarter: 2005Q4

REPORT INFORMATION
  Report Type: 
  Country: None (occurrence: None)
  Receive Date: 20051017
  Receipt Date: 20051007
  Transmission Date: 20060501
  Serious: Yes (Hospitalization)
  Sender: FDA-Public Use
  Company Number: PHRM2005FR02658

PATIENT
  Age: 63 Year
  Sex: Female

DRUGS (4)
  1. GAVISCON ^RECKITT + COLMAN^ [Concomitant]
     Dosage: UNK, UNK
     Route: 048
  2. KERLONE [Concomitant]
     Dosage: UNK, UNK
     Route: 048
  3. AZANTAC [Concomitant]
     Dosage: UNK, UNK
     Route: 048
  4. GLEEVEC [Suspect]
     Indication: CHRONIC MYELOID LEUKAEMIA
     Dosage: 400 MG, DAILY
     Route: 048
     Dates: start: 20020301

REACTIONS (2)
  - CERVIX CARCINOMA [None]
  - PELVIC PAIN [None]
